FAERS Safety Report 9149108 (Version 1)
Quarter: 2013Q1

REPORT INFORMATION
  Report Type: Spontaneous
  Country: US (occurrence: None)
  Receive Date: 20130228
  Receipt Date: 20130228
  Transmission Date: 20140127
  Serious: Yes (Hospitalization)
  Sender: FDA-Public Use
  Company Number: None

PATIENT
  Age: 22 Year
  Sex: Female
  Weight: 109.23 kg

DRUGS (10)
  1. TOPIRAMATE [Suspect]
     Dosage: 75MG  DAILY  ORAL
     Route: 048
     Dates: start: 20130128, end: 20130216
  2. ONABOTULINUMTOXIN A [Suspect]
     Dosage: 155 U  ONCE  SUBCUTANEOUS
     Route: 058
     Dates: start: 20130128, end: 20130128
  3. ZEGRID [Concomitant]
  4. CELEXA [Concomitant]
  5. ZOLOFT [Concomitant]
  6. YAZ [Concomitant]
  7. MAGNESIUM [Concomitant]
  8. TRAMADOL [Concomitant]
  9. PHENTERMINE [Concomitant]
  10. DIPHENHYDRAMINE [Concomitant]

REACTIONS (1)
  - Cholecystitis [None]
